FAERS Safety Report 19098120 (Version 2)
Quarter: 2021Q2

REPORT INFORMATION
  Report Type: Spontaneous
  Country: JP (occurrence: JP)
  Receive Date: 20210406
  Receipt Date: 20210609
  Transmission Date: 20210717
  Serious: Yes (Death, Hospitalization, Other)
  Sender: FDA-Public Use
  Company Number: JP-BRISTOL-MYERS SQUIBB COMPANY-BMS-2021-031842

PATIENT
  Age: 76 Year
  Sex: Male
  Weight: 68.4 kg

DRUGS (2)
  1. YERVOY [Suspect]
     Active Substance: IPILIMUMAB
     Indication: MALIGNANT MELANOMA
     Dosage: 186 MILLIGRAM
     Route: 041
     Dates: start: 20200123, end: 20200305
  2. OPDIVO [Suspect]
     Active Substance: NIVOLUMAB
     Indication: MALIGNANT MELANOMA
     Dosage: 80 MILLIGRAM
     Route: 041
     Dates: start: 20200123, end: 20200305

REACTIONS (10)
  - Sepsis [Fatal]
  - Blood pressure decreased [Unknown]
  - Fungaemia [Unknown]
  - Peritonitis [Unknown]
  - Septic shock [Unknown]
  - Drug-induced liver injury [Fatal]
  - Large intestine perforation [Fatal]
  - Acute kidney injury [Unknown]
  - Constipation [Unknown]
  - Acidosis [Unknown]

NARRATIVE: CASE EVENT DATE: 20200326
